FAERS Safety Report 24722152 (Version 1)
Quarter: 2024Q4

REPORT INFORMATION
  Report Type: Spontaneous
  Country: GB (occurrence: GB)
  Receive Date: 20241211
  Receipt Date: 20241211
  Transmission Date: 20250115
  Serious: Yes (Hospitalization)
  Sender: ELI LILLY AND COMPANY
  Company Number: GB-ELI_LILLY_AND_COMPANY-GB202412003638

PATIENT
  Sex: Female

DRUGS (1)
  1. MOUNJARO [Suspect]
     Active Substance: TIRZEPATIDE
     Indication: Diabetes mellitus
     Dosage: UNK UNK, UNKNOWN
     Route: 065

REACTIONS (9)
  - Headache [Unknown]
  - Hyperhidrosis [Unknown]
  - Palpitations [Unknown]
  - Insomnia [Unknown]
  - Hypophagia [Unknown]
  - Dizziness [Unknown]
  - Heart rate increased [Unknown]
  - Malaise [Unknown]
  - Dyspepsia [Unknown]
